FAERS Safety Report 20665794 (Version 8)
Quarter: 2022Q3

REPORT INFORMATION
  Report Type: Report from Study
  Country: TH (occurrence: None)
  Receive Date: 20220402
  Receipt Date: 20220805
  Transmission Date: 20221026
  Serious: Yes (Life-Threatening, Hospitalization)
  Sender: FDA-Public Use
  Company Number: TH-ROCHE-2888344

PATIENT
  Age: 60 Year
  Sex: Male
  Weight: 59.5 kg

DRUGS (133)
  1. ATEZOLIZUMAB [Suspect]
     Active Substance: ATEZOLIZUMAB
     Indication: Oesophageal squamous cell carcinoma metastatic
     Dosage: ON 04/AUG/2021, RECEIVED THE MOST RECENT DOSE OF BLINDED ATEZOLIZUMAB PRIOR TO SERIOUS ADVERSE EVENT
     Route: 041
     Dates: start: 20210518
  2. TIRAGOLUMAB [Suspect]
     Active Substance: TIRAGOLUMAB
     Indication: Oesophageal squamous cell carcinoma metastatic
     Dosage: ON 04/AUG/2021, RECEIVED THE MOST RECENT DOSE OF BLINDED TIRAGOLUMAB PRIOR TO SERIOUS ADVERSE EVENT
     Route: 042
     Dates: start: 20210518
  3. PACLITAXEL [Suspect]
     Active Substance: PACLITAXEL
     Indication: Oesophageal squamous cell carcinoma metastatic
     Dosage: ON 04/AUG/2021, RECEIVED THE MOST RECENT DOSE OF PACLITAXEL (297 MG) PRIOR TO SERIOUS ADVERSE EVENT
     Route: 042
     Dates: start: 20210518
  4. CISPLATIN [Suspect]
     Active Substance: CISPLATIN
     Indication: Oesophageal squamous cell carcinoma metastatic
     Dosage: ON 04/AUG/2021, RECEIVED THE MOST RECENT DOSE OF CISPLATIN (125 MG) PRIOR TO SERIOUS ADVERSE EVENT O
     Route: 042
     Dates: start: 20210518
  5. FAMOTIDINE [Concomitant]
     Active Substance: FAMOTIDINE
     Dates: start: 20210518, end: 20210518
  6. FAMOTIDINE [Concomitant]
     Active Substance: FAMOTIDINE
     Dates: start: 20210720, end: 20210720
  7. FAMOTIDINE [Concomitant]
     Active Substance: FAMOTIDINE
     Dates: start: 20210810, end: 20210810
  8. FAMOTIDINE [Concomitant]
     Active Substance: FAMOTIDINE
     Dates: start: 20210831, end: 20210831
  9. FAMOTIDINE [Concomitant]
     Active Substance: FAMOTIDINE
     Dates: start: 20210608, end: 20210608
  10. FAMOTIDINE [Concomitant]
     Active Substance: FAMOTIDINE
     Dates: start: 20210629, end: 20210629
  11. FAMOTIDINE [Concomitant]
     Active Substance: FAMOTIDINE
     Dates: start: 20210920
  12. ONDANSETRON [Concomitant]
     Active Substance: ONDANSETRON
     Indication: Nausea
     Route: 042
     Dates: start: 20210518, end: 20210518
  13. ONDANSETRON [Concomitant]
     Active Substance: ONDANSETRON
     Dates: start: 20210720, end: 20210724
  14. ONDANSETRON [Concomitant]
     Active Substance: ONDANSETRON
     Dates: start: 20210721, end: 20210725
  15. ONDANSETRON [Concomitant]
     Active Substance: ONDANSETRON
     Dates: start: 20210810, end: 20210810
  16. ONDANSETRON [Concomitant]
     Active Substance: ONDANSETRON
     Dates: start: 20210831, end: 20210831
  17. ONDANSETRON [Concomitant]
     Active Substance: ONDANSETRON
     Dates: start: 20210519
  18. ONDANSETRON [Concomitant]
     Active Substance: ONDANSETRON
     Dates: start: 20210608, end: 20210608
  19. ONDANSETRON [Concomitant]
     Active Substance: ONDANSETRON
     Dates: start: 20210609, end: 20210613
  20. ONDANSETRON [Concomitant]
     Active Substance: ONDANSETRON
     Dates: start: 20210629, end: 20210629
  21. ONDANSETRON [Concomitant]
     Active Substance: ONDANSETRON
     Route: 048
     Dates: start: 20220307
  22. ONDANSETRON [Concomitant]
     Active Substance: ONDANSETRON
     Dates: start: 20210811, end: 20210815
  23. ONDANSETRON [Concomitant]
     Active Substance: ONDANSETRON
     Dates: start: 20210901, end: 20210905
  24. ONDANSETRON [Concomitant]
     Active Substance: ONDANSETRON
     Route: 042
     Dates: start: 20220316, end: 20220317
  25. ONDANSETRON [Concomitant]
     Active Substance: ONDANSETRON
     Route: 042
     Dates: start: 20210720, end: 20210724
  26. MANNITOL [Concomitant]
     Active Substance: MANNITOL
     Dates: start: 20210518, end: 20210518
  27. MANNITOL [Concomitant]
     Active Substance: MANNITOL
     Dates: start: 20210720, end: 20210720
  28. MANNITOL [Concomitant]
     Active Substance: MANNITOL
     Dates: start: 20210810, end: 20210810
  29. MANNITOL [Concomitant]
     Active Substance: MANNITOL
     Dates: start: 20210831, end: 20210831
  30. MANNITOL [Concomitant]
     Active Substance: MANNITOL
     Dates: start: 20210608, end: 20210608
  31. MANNITOL [Concomitant]
     Active Substance: MANNITOL
     Dates: start: 20210629, end: 20210629
  32. SALINE [Concomitant]
     Active Substance: SODIUM CHLORIDE
     Dates: start: 20210518
  33. SALINE [Concomitant]
     Active Substance: SODIUM CHLORIDE
     Dates: start: 20210719, end: 20210720
  34. SALINE [Concomitant]
     Active Substance: SODIUM CHLORIDE
     Dates: start: 20210809, end: 20210810
  35. SALINE [Concomitant]
     Active Substance: SODIUM CHLORIDE
     Dates: start: 20210831, end: 20210831
  36. SALINE [Concomitant]
     Active Substance: SODIUM CHLORIDE
     Dates: start: 20210517, end: 20210518
  37. SALINE [Concomitant]
     Active Substance: SODIUM CHLORIDE
     Dates: start: 20210607, end: 20210608
  38. SALINE [Concomitant]
     Active Substance: SODIUM CHLORIDE
     Dates: start: 20210628, end: 20210629
  39. SALINE [Concomitant]
     Active Substance: SODIUM CHLORIDE
     Dates: start: 20210830, end: 20210831
  40. MAGNESIUM SULFATE [Concomitant]
     Active Substance: MAGNESIUM SULFATE
     Dates: start: 20210518
  41. MAGNESIUM SULFATE [Concomitant]
     Active Substance: MAGNESIUM SULFATE
     Dates: start: 20210719, end: 20210720
  42. MAGNESIUM SULFATE [Concomitant]
     Active Substance: MAGNESIUM SULFATE
     Dates: start: 20210809, end: 20210810
  43. MAGNESIUM SULFATE [Concomitant]
     Active Substance: MAGNESIUM SULFATE
     Dates: start: 20210830, end: 20210831
  44. MAGNESIUM SULFATE [Concomitant]
     Active Substance: MAGNESIUM SULFATE
     Dates: start: 20210517, end: 20210518
  45. MAGNESIUM SULFATE [Concomitant]
     Active Substance: MAGNESIUM SULFATE
     Dates: start: 20210607, end: 20210608
  46. MAGNESIUM SULFATE [Concomitant]
     Active Substance: MAGNESIUM SULFATE
     Dates: start: 20210628, end: 20210629
  47. MAGNESIUM SULFATE [Concomitant]
     Active Substance: MAGNESIUM SULFATE
     Dates: start: 20210719, end: 20210720
  48. POTASSIUM CHLORIDE [Concomitant]
     Active Substance: POTASSIUM CHLORIDE
     Dates: start: 20210518
  49. POTASSIUM CHLORIDE [Concomitant]
     Active Substance: POTASSIUM CHLORIDE
     Dates: start: 20210719, end: 20210720
  50. POTASSIUM CHLORIDE [Concomitant]
     Active Substance: POTASSIUM CHLORIDE
     Dates: start: 20210809, end: 20210810
  51. POTASSIUM CHLORIDE [Concomitant]
     Active Substance: POTASSIUM CHLORIDE
     Dates: start: 20210830, end: 20210830
  52. POTASSIUM CHLORIDE [Concomitant]
     Active Substance: POTASSIUM CHLORIDE
     Dates: start: 20210517, end: 20210518
  53. POTASSIUM CHLORIDE [Concomitant]
     Active Substance: POTASSIUM CHLORIDE
     Dates: start: 20210607, end: 20210608
  54. POTASSIUM CHLORIDE [Concomitant]
     Active Substance: POTASSIUM CHLORIDE
     Dates: start: 20210628, end: 20210629
  55. DEXAMETHASONE [Concomitant]
     Active Substance: DEXAMETHASONE
     Indication: Cardiac arrest
     Route: 048
     Dates: start: 20210519, end: 20210521
  56. DEXAMETHASONE [Concomitant]
     Active Substance: DEXAMETHASONE
     Route: 042
     Dates: start: 20210720, end: 20210720
  57. DEXAMETHASONE [Concomitant]
     Active Substance: DEXAMETHASONE
     Route: 048
     Dates: start: 20210721, end: 20210723
  58. DEXAMETHASONE [Concomitant]
     Active Substance: DEXAMETHASONE
     Route: 042
     Dates: start: 20210810, end: 20210810
  59. DEXAMETHASONE [Concomitant]
     Active Substance: DEXAMETHASONE
     Route: 048
     Dates: start: 20210811, end: 20210813
  60. DEXAMETHASONE [Concomitant]
     Active Substance: DEXAMETHASONE
     Route: 042
     Dates: start: 20210831, end: 20210831
  61. DEXAMETHASONE [Concomitant]
     Active Substance: DEXAMETHASONE
     Route: 048
     Dates: start: 20210901, end: 20210903
  62. DEXAMETHASONE [Concomitant]
     Active Substance: DEXAMETHASONE
     Route: 042
     Dates: start: 20210518, end: 20210518
  63. DEXAMETHASONE [Concomitant]
     Active Substance: DEXAMETHASONE
     Route: 042
     Dates: start: 20210608, end: 20210608
  64. DEXAMETHASONE [Concomitant]
     Active Substance: DEXAMETHASONE
     Route: 048
     Dates: start: 20210609, end: 20210611
  65. DEXAMETHASONE [Concomitant]
     Active Substance: DEXAMETHASONE
     Route: 042
     Dates: start: 20210629, end: 20210629
  66. DEXAMETHASONE [Concomitant]
     Active Substance: DEXAMETHASONE
     Route: 048
     Dates: start: 20210630, end: 20210704
  67. DEXAMETHASONE [Concomitant]
     Active Substance: DEXAMETHASONE
     Route: 048
     Dates: start: 20210811, end: 20210813
  68. DEXAMETHASONE [Concomitant]
     Active Substance: DEXAMETHASONE
     Route: 042
     Dates: start: 20220718, end: 20220718
  69. OLANZAPINE [Concomitant]
     Active Substance: OLANZAPINE
     Dates: start: 20210519, end: 20210523
  70. OLANZAPINE [Concomitant]
     Active Substance: OLANZAPINE
     Dates: start: 20210720, end: 20210725
  71. OLANZAPINE [Concomitant]
     Active Substance: OLANZAPINE
     Dates: start: 20210801, end: 20210814
  72. OLANZAPINE [Concomitant]
     Active Substance: OLANZAPINE
     Dates: start: 20210831, end: 20210904
  73. OLANZAPINE [Concomitant]
     Active Substance: OLANZAPINE
     Dates: start: 20210609, end: 20210613
  74. OLANZAPINE [Concomitant]
     Active Substance: OLANZAPINE
     Dates: start: 20210810, end: 20210814
  75. OLANZAPINE [Concomitant]
     Active Substance: OLANZAPINE
     Dates: start: 20210831, end: 20210904
  76. TRAMADOL [Concomitant]
     Active Substance: TRAMADOL
     Indication: Myalgia
     Dates: start: 20210521, end: 20211001
  77. TRAMADOL [Concomitant]
     Active Substance: TRAMADOL
     Dates: start: 20210613, end: 20211001
  78. MAGNESIUM CHLORIDE [Concomitant]
     Active Substance: MAGNESIUM CHLORIDE
     Indication: Hypomagnesaemia
     Dates: start: 20210727, end: 20210730
  79. MAGNESIUM CHLORIDE [Concomitant]
     Active Substance: MAGNESIUM CHLORIDE
     Dates: start: 20210816, end: 20210819
  80. CHLORPHENIRAMINE [Concomitant]
     Active Substance: CHLORPHENIRAMINE
     Indication: Prophylaxis
     Dates: start: 20210830, end: 20210830
  81. CHLORPHENIRAMINE [Concomitant]
     Active Substance: CHLORPHENIRAMINE
     Route: 042
     Dates: start: 20210518, end: 20210518
  82. ACETAMINOPHEN [Concomitant]
     Active Substance: ACETAMINOPHEN
     Indication: Pyrexia
     Dates: start: 20210830, end: 20210830
  83. ACETAMINOPHEN [Concomitant]
     Active Substance: ACETAMINOPHEN
     Indication: Pain
     Dates: start: 20210607, end: 20210607
  84. ACETAMINOPHEN [Concomitant]
     Active Substance: ACETAMINOPHEN
     Indication: Headache
     Dates: start: 20210624, end: 20210624
  85. ACETAMINOPHEN [Concomitant]
     Active Substance: ACETAMINOPHEN
     Dates: start: 20220623
  86. SENOKOT [Concomitant]
     Active Substance: SENNOSIDES
     Indication: Constipation
     Dates: start: 20210621
  87. LORAZEPAM [Concomitant]
     Active Substance: LORAZEPAM
     Indication: Insomnia
     Dates: start: 20210827, end: 20210827
  88. FERLI-6 [Concomitant]
     Indication: Anaemia
     Dates: start: 20210830, end: 20210906
  89. PREVACID [Concomitant]
     Active Substance: LANSOPRAZOLE
     Indication: Flatulence
     Dates: start: 20210831, end: 20210906
  90. AIR-X [Concomitant]
     Indication: Flatulence
     Dates: start: 20210830, end: 20210906
  91. BENADRYL [Concomitant]
     Active Substance: DIPHENHYDRAMINE HYDROCHLORIDE
     Dates: start: 20210720, end: 20210720
  92. BENADRYL [Concomitant]
     Active Substance: DIPHENHYDRAMINE HYDROCHLORIDE
     Dates: start: 20210810, end: 20210810
  93. BENADRYL [Concomitant]
     Active Substance: DIPHENHYDRAMINE HYDROCHLORIDE
     Dates: start: 20210831, end: 20210831
  94. BENADRYL [Concomitant]
     Active Substance: DIPHENHYDRAMINE HYDROCHLORIDE
     Dates: start: 20210608, end: 20210608
  95. BENADRYL [Concomitant]
     Active Substance: DIPHENHYDRAMINE HYDROCHLORIDE
     Dates: start: 20210629, end: 20210629
  96. BENADRYL [Concomitant]
     Active Substance: DIPHENHYDRAMINE HYDROCHLORIDE
     Dates: start: 20210920
  97. BENADRYL [Concomitant]
     Active Substance: DIPHENHYDRAMINE HYDROCHLORIDE
     Dates: start: 20210720, end: 20210725
  98. TRIAMCINOLONE [Concomitant]
     Active Substance: TRIAMCINOLONE
     Indication: Dermatitis
     Route: 061
     Dates: start: 20220221
  99. DOMPERIDONE [Concomitant]
     Active Substance: DOMPERIDONE
     Indication: Nausea
     Route: 048
     Dates: start: 20220414, end: 20220425
  100. DOMPERIDONE [Concomitant]
     Active Substance: DOMPERIDONE
     Indication: Flatulence
     Dates: start: 20220606
  101. NORGESIC (THAILAND) [Concomitant]
     Indication: Myalgia
     Dates: start: 20220201
  102. NORGESIC (THAILAND) [Concomitant]
     Dates: start: 20220214
  103. PREDNISOLONE [Concomitant]
     Active Substance: PREDNISOLONE
     Indication: Adrenal insufficiency
     Route: 048
     Dates: start: 20220418
  104. PREDNISOLONE [Concomitant]
     Active Substance: PREDNISOLONE
     Route: 048
     Dates: start: 20220416, end: 20220416
  105. PREDNISOLONE [Concomitant]
     Active Substance: PREDNISOLONE
     Route: 048
     Dates: start: 20220417, end: 20220417
  106. OMEPRAZOE [Concomitant]
     Indication: Flatulence
     Route: 048
     Dates: start: 20220413, end: 20220416
  107. OMEPRAZOE [Concomitant]
     Dates: start: 20220606
  108. ZINC SULFATE [Concomitant]
     Active Substance: ZINC SULFATE
     Route: 048
     Dates: start: 20220413, end: 20220426
  109. METOCLOPRAMIDE HYDROCHLORIDE [Concomitant]
     Active Substance: METOCLOPRAMIDE HYDROCHLORIDE
     Indication: Vomiting
     Route: 042
     Dates: start: 20220413, end: 20220414
  110. THIAMINE [Concomitant]
     Active Substance: THIAMINE
     Route: 042
     Dates: start: 20220413, end: 20220414
  111. COSYNTROPIN [Concomitant]
     Active Substance: COSYNTROPIN
     Indication: ACTH stimulation test
     Route: 042
     Dates: start: 20220415, end: 20220415
  112. HYDROCORTISONE [Concomitant]
     Active Substance: HYDROCORTISONE
     Indication: Adrenal insufficiency
     Route: 042
     Dates: start: 20220415, end: 20220415
  113. HYDROCORTISONE [Concomitant]
     Active Substance: HYDROCORTISONE
     Route: 042
     Dates: start: 20220718, end: 20220718
  114. SODIUM CHLORIDE [Concomitant]
     Active Substance: SODIUM CHLORIDE
     Route: 042
     Dates: start: 20220414, end: 20220416
  115. METHYL SALICYLATE [Concomitant]
     Active Substance: METHYL SALICYLATE
     Indication: Myalgia
     Dates: start: 20220214
  116. AMOXICILLIN AND CLAVULANATE POTASSIUM [Concomitant]
     Active Substance: AMOXICILLIN\CLAVULANATE POTASSIUM
     Indication: Sepsis
     Route: 048
     Dates: start: 20220318, end: 20220326
  117. OFLOXACIN [Concomitant]
     Active Substance: OFLOXACIN
     Indication: Sepsis
     Route: 048
     Dates: start: 20220316, end: 20220319
  118. DEXTROMETHORPHAN [Concomitant]
     Active Substance: DEXTROMETHORPHAN
     Indication: Throat irritation
     Route: 048
     Dates: start: 20220318, end: 20220319
  119. BETAHISTINE [Concomitant]
     Active Substance: BETAHISTINE
     Indication: Vertigo
     Route: 048
     Dates: start: 20220315, end: 20220316
  120. BETAHISTINE [Concomitant]
     Active Substance: BETAHISTINE
     Route: 048
     Dates: start: 20220316, end: 20220416
  121. INHALEX FORTE [Concomitant]
     Indication: Dyspnoea
     Route: 055
     Dates: start: 20220718, end: 20220718
  122. LACTATED RINGERS SOLUTION [Concomitant]
     Active Substance: CALCIUM CHLORIDE\POTASSIUM CHLORIDE\SODIUM CHLORIDE\SODIUM LACTATE
     Indication: Cardiac arrest
     Route: 042
     Dates: start: 20220718, end: 20220718
  123. PIPERACILLIN SODIUM\TAZOBACTAM SODIUM [Concomitant]
     Active Substance: PIPERACILLIN SODIUM\TAZOBACTAM SODIUM
     Indication: Sepsis
     Route: 042
     Dates: start: 20220718, end: 20220718
  124. ADENOSINE [Concomitant]
     Active Substance: ADENOSINE
     Route: 042
     Dates: start: 20220718, end: 20220718
  125. ENOXAPARIN [Concomitant]
     Active Substance: ENOXAPARIN
     Route: 058
     Dates: start: 20220718, end: 20220718
  126. NOREPINEPHRINE [Concomitant]
     Active Substance: NOREPINEPHRINE
     Indication: Hypotension
     Route: 042
     Dates: start: 20220718, end: 20220718
  127. ETOMIDATE [Concomitant]
     Active Substance: ETOMIDATE
     Route: 042
     Dates: start: 20220718, end: 20220718
  128. SUCCINYLCHOLINE [Concomitant]
     Active Substance: SUCCINYLCHOLINE
     Route: 042
     Dates: start: 20220718, end: 20220718
  129. AMIODARONE [Concomitant]
     Active Substance: AMIODARONE
     Indication: Cardiac arrest
     Route: 042
     Dates: start: 20220718, end: 20220718
  130. AMIODARONE [Concomitant]
     Active Substance: AMIODARONE
     Route: 042
     Dates: start: 20220718, end: 20220718
  131. EPINEPHRINE [Concomitant]
     Active Substance: EPINEPHRINE
     Indication: Cardiac arrest
     Route: 042
     Dates: start: 20220718, end: 20220718
  132. SODIUM BICARBONATE [Concomitant]
     Active Substance: SODIUM BICARBONATE
     Indication: Cardiac arrest
     Route: 042
     Dates: start: 20220718, end: 20220718
  133. CALCIUM [Concomitant]
     Active Substance: CALCIUM
     Indication: Cardiac arrest
     Route: 042
     Dates: start: 20220718, end: 20220718

REACTIONS (2)
  - Hyponatraemia [Not Recovered/Not Resolved]
  - Pneumonitis [Recovered/Resolved]

NARRATIVE: CASE EVENT DATE: 20210607
